FAERS Safety Report 5297598-0 (Version None)
Quarter: 2007Q2

REPORT INFORMATION
  Report Type: 
  Country: None (occurrence: None)
  Receive Date: 20070412
  Receipt Date: 20070412
  Transmission Date: 20071010
  Serious: Yes (Other)
  Sender: FDA-Public Use
  Company Number: None

PATIENT
  Age: 77 Year
  Sex: Female
  Weight: 44.4979 kg

DRUGS (10)
  1. CARIMUNE 12 G ZLB BEHRING [Suspect]
     Indication: MYASTHENIA GRAVIS
     Dosage: 16 G DAILY X 5 DAYS IV
     Route: 042
     Dates: start: 20070124, end: 20070125
  2. PYRIDOSTIGMINE BROMIDE [Concomitant]
  3. PROMETHAZINE [Concomitant]
  4. CELLCEPT [Concomitant]
  5. M.V.I. [Concomitant]
  6. OMEPRAZOLE [Concomitant]
  7. PREDNISONE TAB [Concomitant]
  8. ACETAMINOPHEN [Concomitant]
  9. DIPHENHYDRAMINE HCL [Concomitant]
  10. RANITIDINE [Concomitant]

REACTIONS (7)
  - DYSAESTHESIA [None]
  - MEDICATION ERROR [None]
  - MUSCLE TIGHTNESS [None]
  - RESTLESSNESS [None]
  - SENSORY DISTURBANCE [None]
  - SPEECH DISORDER [None]
  - TREMOR [None]
